FAERS Safety Report 17137332 (Version 1)
Quarter: 2019Q4

REPORT INFORMATION
  Report Type: Spontaneous
  Country: US (occurrence: US)
  Receive Date: 20191119
  Receipt Date: 20191119
  Transmission Date: 20200122
  Serious: Yes (Hospitalization)
  Sender: FDA-Public Use
  Company Number: None

PATIENT
  Sex: Male
  Weight: 74 kg

DRUGS (4)
  1. IFOAFAMIDE [Concomitant]
  2. PACLITAXEL. [Concomitant]
     Active Substance: PACLITAXEL
  3. CISPLATIN (119875) [Suspect]
     Active Substance: CISPLATIN
     Dates: start: 20190830
  4. G-CSF (FILGRASTIM AMGEN) [Concomitant]
     Active Substance: FILGRASTIM

REACTIONS (5)
  - Haemoglobin decreased [None]
  - Febrile bone marrow aplasia [None]
  - Mucosal inflammation [None]
  - Febrile neutropenia [None]
  - Oral candidiasis [None]
